FAERS Safety Report 16076629 (Version 1)
Quarter: 2019Q1

REPORT INFORMATION
  Report Type: Spontaneous
  Country: US (occurrence: US)
  Receive Date: 20190214
  Receipt Date: 20190214
  Transmission Date: 20190418
  Serious: Yes (Hospitalization)
  Sender: FDA-Public Use
  Company Number: None

PATIENT
  Age: 63 Year
  Sex: Female

DRUGS (7)
  1. ENBREL [Suspect]
     Active Substance: ETANERCEPT
     Indication: RHEUMATOID ARTHRITIS
     Dosage: ?          OTHER FREQUENCY:QWEEK;?
     Route: 058
     Dates: start: 20161031, end: 20180723
  2. VITAMIN D3 [Concomitant]
     Active Substance: CHOLECALCIFEROL
  3. MVI [Concomitant]
     Active Substance: VITAMINS
  4. PREDNISONE. [Concomitant]
     Active Substance: PREDNISONE
  5. GLUCOSAMINE [Concomitant]
     Active Substance: GLUCOSAMINE
  6. MAGNESIUM [Concomitant]
     Active Substance: MAGNESIUM
  7. MELOXICAM. [Concomitant]
     Active Substance: MELOXICAM

REACTIONS (3)
  - Surgery [None]
  - Infection [None]
  - Therapy cessation [None]

NARRATIVE: CASE EVENT DATE: 20190213
